FAERS Safety Report 23289515 (Version 1)
Quarter: 2023Q4

REPORT INFORMATION
  Report Type: Spontaneous
  Country: US (occurrence: US)
  Receive Date: 20231212
  Receipt Date: 20231212
  Transmission Date: 20240110
  Serious: Yes (Other)
  Sender: FDA-Public Use
  Company Number: US-BEH-2023166276

PATIENT
  Sex: Female

DRUGS (37)
  1. HIZENTRA [Suspect]
     Active Substance: HUMAN IMMUNOGLOBULIN G
     Indication: Immunodeficiency common variable
     Dosage: 10 GRAM, QW
     Route: 058
     Dates: start: 20210115
  2. ALBUTEROL SULFATE [Concomitant]
     Active Substance: ALBUTEROL SULFATE
     Dosage: 0.083 PERCENT
  3. ALBUTEROL SULFATE [Concomitant]
     Active Substance: ALBUTEROL SULFATE
     Dosage: 1.25 MILLIGRAM
  4. AMITRIPTYLINE [Concomitant]
     Active Substance: AMITRIPTYLINE
     Dosage: 25 MILLIGRAM
  5. AMLODIPINE [Concomitant]
     Active Substance: AMLODIPINE BESYLATE
     Dosage: 5 MILLIGRAM
  6. AMMONIUM ACETATE [Concomitant]
     Active Substance: AMMONIUM ACETATE
     Dosage: 12 PERCENT
  7. ATROVENT HFA [Concomitant]
     Active Substance: IPRATROPIUM BROMIDE
     Dosage: 17 MICROGRAM
  8. AUGMENTIN ES-600 [Concomitant]
     Active Substance: AMOXICILLIN\CLAVULANATE POTASSIUM
     Dosage: 600 MILLIGRAM
  9. AZITHROMYCIN [Concomitant]
     Active Substance: AZITHROMYCIN
     Dosage: 250 MILLIGRAM
  10. CEPHALEXIN [Concomitant]
     Active Substance: CEPHALEXIN
     Dosage: 500 MILLIGRAM
  11. CIPROFLOXACIN [Concomitant]
     Active Substance: CIPROFLOXACIN
     Dosage: 500 MILLIGRAM
  12. CLINDAMYCIN [Concomitant]
     Active Substance: CLINDAMYCIN
     Dosage: 150 MILLIGRAM
  13. BETAMETHASONE DIPROPIONATE\CLOTRIMAZOLE [Concomitant]
     Active Substance: BETAMETHASONE DIPROPIONATE\CLOTRIMAZOLE
     Dosage: 1 MILLIGRAM/0.05%
  14. CYCLOBENZAPRINE [Concomitant]
     Active Substance: CYCLOBENZAPRINE
     Dosage: 5 MILLIGRAM
  15. DICLOFENAC [Concomitant]
     Active Substance: DICLOFENAC
     Dosage: 1 PERCENT
  16. EPINEPHRINE [Concomitant]
     Active Substance: EPINEPHRINE
     Dosage: 0.3 MILLIGRAM
  17. FAMOTIDINE [Concomitant]
     Active Substance: FAMOTIDINE
     Dosage: 20 MILLIGRAM
  18. HYDROCODONE [Concomitant]
     Active Substance: HYDROCODONE
     Dosage: 5 MILLIGRAM
  19. HYDROXYCHLOROQUINE [Concomitant]
     Active Substance: HYDROXYCHLOROQUINE
     Dosage: 200 MILLIGRAM
  20. IPRATROPIUM [Concomitant]
     Active Substance: IPRATROPIUM
     Dosage: 0.02 PERCENT
  21. IPRATROPIUM [Concomitant]
     Active Substance: IPRATROPIUM
     Dosage: 0.06 UNK
  22. LOSARTAN [Concomitant]
     Active Substance: LOSARTAN
     Dosage: 100 MILLIGRAM
  23. LOSARTAN [Concomitant]
     Active Substance: LOSARTAN
     Dosage: 50 UNK
  24. METHYLPREDNISOLONE [Concomitant]
     Active Substance: METHYLPREDNISOLONE
     Dosage: 4 MILLIGRAM
  25. OMEPRAZOLE [Concomitant]
     Active Substance: OMEPRAZOLE
     Dosage: 20 MILLIGRAM
  26. PAROXETINE [Concomitant]
     Active Substance: PAROXETINE
     Dosage: 20 MILLIGRAM
  27. PAROXETINE [Concomitant]
     Active Substance: PAROXETINE
     Dosage: 40 UNK
  28. PREDNISONE [Concomitant]
     Active Substance: PREDNISONE
     Dosage: 5 MILLIGRAM
  29. PROGESTERONE [Concomitant]
     Active Substance: PROGESTERONE
     Dosage: 100 MILLIGRAM
  30. SYMBICORT [Concomitant]
     Active Substance: BUDESONIDE\FORMOTEROL FUMARATE DIHYDRATE
     Dosage: 160 MILLIGRAM
  31. THEOPHYLLINE [Concomitant]
     Active Substance: THEOPHYLLINE
     Dosage: 300 MILLIGRAM
  32. THEOPHYLLINE [Concomitant]
     Active Substance: THEOPHYLLINE
     Dosage: 300 MILLIGRAM ER
  33. TOBRAMYCIN [Concomitant]
     Active Substance: TOBRAMYCIN
     Dosage: 300 MILLIGRAM
  34. TRIAMCINOLONE [Concomitant]
     Active Substance: TRIAMCINOLONE
     Dosage: 0.1 PERCENT
  35. VENTOLIN HFA [Concomitant]
     Active Substance: ALBUTEROL SULFATE
  36. VITAMIN D3 [Concomitant]
     Active Substance: CHOLECALCIFEROL
     Dosage: 5000 INTERNATIONAL UNIT
  37. VITAMIN D2 [Concomitant]
     Active Substance: ERGOCALCIFEROL
     Dosage: 2000 INTERNATIONAL UNIT

REACTIONS (2)
  - Diverticulitis [Unknown]
  - Sinus operation [Unknown]
